FAERS Safety Report 5934553-9 (Version None)
Quarter: 2008Q4

REPORT INFORMATION
  Report Type: 
  Country: None (occurrence: None)
  Receive Date: 20081029
  Receipt Date: 20081023
  Transmission Date: 20090506
  Serious: Yes (Hospitalization)
  Sender: FDA-Public Use
  Company Number: RO-ABBOTT-08P-135-0473250-00

PATIENT
  Sex: Male
  Weight: 98 kg

DRUGS (5)
  1. HUMIRA [Suspect]
     Indication: RHEUMATOID ARTHRITIS
     Route: 058
     Dates: start: 20070301, end: 20080727
  2. METHOTREXATE [Suspect]
     Indication: RHEUMATOID ARTHRITIS
     Dates: start: 20060801, end: 20080802
  3. LEFLUNOMIDE [Suspect]
     Indication: RHEUMATOID ARTHRITIS
     Dates: start: 20061101, end: 20080802
  4. HYDROXYCHLOROQUINE [Concomitant]
     Indication: RHEUMATOID ARTHRITIS
     Dosage: 400 MG DAILY
     Dates: start: 20061101, end: 20080820
  5. HYDROXYCHLOROQUINE [Concomitant]
     Dosage: 400 MG DAILY
     Dates: start: 20080915

REACTIONS (5)
  - ARTHRITIS [None]
  - ARTHRITIS BACTERIAL [None]
  - ASTHENIA [None]
  - BURSITIS INFECTIVE [None]
  - FISTULA [None]
